FAERS Safety Report 23933718 (Version 4)
Quarter: 2025Q3

REPORT INFORMATION
  Report Type: Spontaneous
  Country: JP (occurrence: JP)
  Receive Date: 20240603
  Receipt Date: 20250721
  Transmission Date: 20251020
  Serious: Yes (Life-Threatening)
  Sender: ALEXION PHARMACEUTICALS
  Company Number: 2024A127346

PATIENT
  Age: 77 Year
  Sex: Male
  Weight: 76 kg

DRUGS (3)
  1. ANDEXXA [Suspect]
     Active Substance: ANDEXANET ALFA
     Indication: Aortic dissection
  2. ANDEXXA [Suspect]
     Active Substance: ANDEXANET ALFA
     Dates: start: 20240516, end: 20240516
  3. ELIQUIS [Suspect]
     Active Substance: APIXABAN
     Indication: Atrial fibrillation
     Dosage: 2.5 MILLIGRAM, QD
     Dates: end: 20240516

REACTIONS (2)
  - Hypercoagulation [Not Recovered/Not Resolved]
  - Heparin resistance [Unknown]

NARRATIVE: CASE EVENT DATE: 20240517
